FAERS Safety Report 14763501 (Version 5)
Quarter: 2018Q3

REPORT INFORMATION
  Report Type: Spontaneous
  Country: US (occurrence: US)
  Receive Date: 20180416
  Receipt Date: 20180723
  Transmission Date: 20181010
  Serious: Yes (Other)
  Sender: FDA-Public Use
  Company Number: US-PFIZER INC-2018153125

PATIENT
  Age: 80 Year
  Sex: Male
  Weight: 111.11 kg

DRUGS (5)
  1. SUTENT [Suspect]
     Active Substance: SUNITINIB MALATE
     Indication: RENAL CELL CARCINOMA
     Dosage: 37.5 MG, CYCLIC (D1?28 Q 28 DAYS)
     Route: 048
     Dates: start: 20180405, end: 2018
  2. SUTENT [Suspect]
     Active Substance: SUNITINIB MALATE
     Dosage: 37.5 MG, CYCLIC (4 WEEKS ON AND 2 WEEKS OFF VS 6 WEEKS OFF)
     Route: 048
     Dates: start: 2018
  3. SUTENT [Suspect]
     Active Substance: SUNITINIB MALATE
     Dosage: 37.5 MG, CYCLIC (2 WEEKS ON 1 WEEK OFF )
     Route: 048
     Dates: end: 20180620
  4. SUTENT [Suspect]
     Active Substance: SUNITINIB MALATE
     Dosage: 37.5 MG, CYCLIC (D1?28 Q 42 DAYS)
     Route: 048
     Dates: start: 2018, end: 2018
  5. SUTENT [Suspect]
     Active Substance: SUNITINIB MALATE
     Dosage: 37.5 MG, CYCLIC (DAY 1?28 Q 42 DAYS)
     Route: 048
     Dates: start: 20180405

REACTIONS (4)
  - Loss of consciousness [Unknown]
  - Nausea [Unknown]
  - Musculoskeletal chest pain [Unknown]
  - Dizziness [Recovering/Resolving]

NARRATIVE: CASE EVENT DATE: 201804
